FAERS Safety Report 4330742-8 (Version None)
Quarter: 2004Q2

REPORT INFORMATION
  Report Type: 
  Country: None (occurrence: None)
  Receive Date: 20040401
  Receipt Date: 20040401
  Transmission Date: 20050107
  Serious: Yes (Hospitalization)
  Sender: FDA-Public Use
  Company Number: None

PATIENT
  Age: 64 Year

DRUGS (2)
  1. GLUCOPHAGE [Suspect]
     Dosage: ORAL
     Route: 048
  2. CHLORPROPAMIDE [Suspect]
     Dosage: ORAL
     Route: 049

REACTIONS (3)
  - CHROMATURIA [None]
  - HEPATIC FAILURE [None]
  - RENAL FAILURE [None]
